FAERS Safety Report 7843282-6 (Version None)
Quarter: 2011Q4

REPORT INFORMATION
  Report Type: 
  Country: None (occurrence: None)
  Receive Date: 20111025
  Receipt Date: 20111020
  Transmission Date: 20120403
  Serious: Yes (Hospitalization)
  Sender: FDA-Public Use
  Company Number: DE-SANOFI-AVENTIS-2011SA069167

PATIENT
  Sex: Female

DRUGS (2)
  1. BETA BLOCKING AGENTS [Concomitant]
     Route: 048
     Dates: start: 20100401
  2. MULTAQ [Suspect]
     Route: 048
     Dates: start: 20100401, end: 20111012

REACTIONS (1)
  - ORGANISING PNEUMONIA [None]
